FAERS Safety Report 4731976-0 (Version None)
Quarter: 2005Q3

REPORT INFORMATION
  Report Type: 
  Country: None (occurrence: None)
  Receive Date: 20050725
  Receipt Date: 20041015
  Transmission Date: 20060218
  Serious: Yes (Life-Threatening)
  Sender: FDA-Public Use
  Company Number: WAES 0410USA02446

PATIENT
  Age: 69 Year
  Sex: Female

DRUGS (6)
  1. VIOXX [Suspect]
     Indication: EXOSTOSIS
     Dosage: 25 MG/PO
     Route: 048
     Dates: start: 20040101, end: 20040718
  2. ARIMIDEX [Concomitant]
  3. DARVOCET-N 100 [Concomitant]
  4. SYNTHROID [Concomitant]
  5. FUROSEMIDE [Concomitant]
  6. LOVASTATIN [Concomitant]

REACTIONS (1)
  - HYPERTENSION [None]
